FAERS Safety Report 7544611-3 (Version None)
Quarter: 2011Q2

REPORT INFORMATION
  Report Type: 
  Country: None (occurrence: None)
  Receive Date: 20110614
  Receipt Date: 20110602
  Transmission Date: 20111010
  Serious: Yes (Hospitalization)
  Sender: FDA-Public Use
  Company Number: US-BIOGENIDEC-2011BI020580

PATIENT
  Age: 48 Year
  Sex: Female

DRUGS (1)
  1. TYSABRI [Suspect]
     Indication: MULTIPLE SCLEROSIS
     Route: 042
     Dates: start: 20060818, end: 20110426

REACTIONS (4)
  - ASTHENIA [None]
  - MEMORY IMPAIRMENT [None]
  - HYSTERECTOMY [None]
  - UTERINE NEOPLASM [None]
